FAERS Safety Report 12703290 (Version 6)
Quarter: 2016Q4

REPORT INFORMATION
  Report Type: Spontaneous
  Country: GB (occurrence: GB)
  Receive Date: 20160831
  Receipt Date: 20161123
  Transmission Date: 20170207
  Serious: Yes (Other)
  Sender: FDA-Public Use
  Company Number: GB-REGENERON PHARMACEUTICALS, INC.-2016-21071

PATIENT

DRUGS (1)
  1. EYLEA [Suspect]
     Active Substance: AFLIBERCEPT
     Indication: NEOVASCULAR AGE-RELATED MACULAR DEGENERATION
     Dosage: TOTAL OF 2 EYLEA INJECTIONS (BOTH EYES)
     Route: 031
     Dates: start: 20160727, end: 20160727

REACTIONS (2)
  - Vitritis [Unknown]
  - Vitreous disorder [Recovering/Resolving]

NARRATIVE: CASE EVENT DATE: 201607
